FAERS Safety Report 16052922 (Version 1)
Quarter: 2019Q1

REPORT INFORMATION
  Report Type: Spontaneous
  Country: GB (occurrence: GB)
  Receive Date: 20190308
  Receipt Date: 20190308
  Transmission Date: 20190418
  Serious: Yes (Life-Threatening)
  Sender: FDA-Public Use
  Company Number: GB-ASTRAZENECA-2019SE34148

PATIENT
  Age: 63 Year
  Sex: Male

DRUGS (1)
  1. DAPAGLIFLOZIN. [Suspect]
     Active Substance: DAPAGLIFLOZIN
     Indication: TYPE 2 DIABETES MELLITUS
     Dosage: 10.0MG UNKNOWN
     Route: 048
     Dates: start: 201412

REACTIONS (4)
  - Diabetic ketoacidosis [Recovered/Resolved]
  - Decreased appetite [Unknown]
  - Oropharyngeal pain [Unknown]
  - Vertigo [Unknown]

NARRATIVE: CASE EVENT DATE: 20190211
